FAERS Safety Report 4767713-3 (Version None)
Quarter: 2005Q3

REPORT INFORMATION
  Report Type: 
  Country: None (occurrence: None)
  Receive Date: 20050912
  Receipt Date: 20050824
  Transmission Date: 20060218
  Serious: Yes (Death, Other)
  Sender: FDA-Public Use
  Company Number: 2005BH001324

PATIENT

DRUGS (4)
  1. CISPLATIN [Suspect]
     Indication: NON-SMALL CELL LUNG CANCER
     Dosage: 50 MG/M**2; EVERY 4 WKL 4 CYCLE
  2. VINORELBINE TARTRATE [Concomitant]
     Indication: NON-SMALL CELL LUNG CANCER
     Dosage: 25 MG***2; EVERY WEEK
  3. ONDASETRON [Concomitant]
  4. CORTICOSTEROIDS [Concomitant]

REACTIONS (1)
  - NEUTROPENIC SEPSIS [None]
